FAERS Safety Report 6078543-7 (Version None)
Quarter: 2009Q1

REPORT INFORMATION
  Report Type: 
  Country: None (occurrence: None)
  Receive Date: 20090212
  Receipt Date: 20090212
  Transmission Date: 20090719
  Serious: Yes (Other)
  Sender: FDA-Public Use
  Company Number: None

PATIENT
  Age: 21 Year
  Sex: Male
  Weight: 84.8226 kg

DRUGS (2)
  1. LYRICA [Suspect]
     Indication: CONVULSION
     Dosage: 50 MG 2 X DAY PO
     Route: 048
     Dates: start: 20081104, end: 20081117
  2. LYRICA [Suspect]
     Indication: HEADACHE
     Dosage: 50 MG 2 X DAY PO
     Route: 048
     Dates: start: 20081104, end: 20081117

REACTIONS (3)
  - DEPRESSION [None]
  - SELF INJURIOUS BEHAVIOUR [None]
  - SUICIDAL IDEATION [None]
